FAERS Safety Report 10486406 (Version 2)
Quarter: 2014Q4

REPORT INFORMATION
  Report Type: Spontaneous
  Country: CA (occurrence: CA)
  Receive Date: 20141001
  Receipt Date: 20141023
  Transmission Date: 20150528
  Serious: Yes (Death, Hospitalization, Other)
  Sender: FDA-Public Use
  Company Number: CA-JNJFOC-20140923001

PATIENT

DRUGS (1)
  1. XARELTO [Suspect]
     Active Substance: RIVAROXABAN
     Indication: PRODUCT USED FOR UNKNOWN INDICATION
     Route: 048

REACTIONS (8)
  - Ulcer haemorrhage [Fatal]
  - Fall [Unknown]
  - Fluid intake reduced [Unknown]
  - Aphagia [Unknown]
  - Renal disorder [Unknown]
  - Renal impairment [Unknown]
  - Neck injury [Unknown]
  - Ulcer [Unknown]
